FAERS Safety Report 18585105 (Version 2)
Quarter: 2021Q4

REPORT INFORMATION
  Report Type: Report from Study
  Country: US (occurrence: US)
  Receive Date: 20201207
  Receipt Date: 20211118
  Transmission Date: 20220303
  Serious: Yes (Death)
  Sender: FDA-Public Use
  Company Number: US-PFIZER INC-2020474763

PATIENT

DRUGS (8)
  1. PACLITAXEL [Suspect]
     Active Substance: PACLITAXEL
     Indication: HER2 protein overexpression
     Dosage: 200 MG/M2, CYCLIC(ON DAY 1)
  2. PACLITAXEL [Suspect]
     Active Substance: PACLITAXEL
     Indication: Transitional cell carcinoma
  3. CARBOPLATIN [Suspect]
     Active Substance: CARBOPLATIN
     Indication: HER2 protein overexpression
     Dosage: UNK, CYCLIC(AREA UNDER THE CURVE OF 5 ON DAY 1)
  4. CARBOPLATIN [Suspect]
     Active Substance: CARBOPLATIN
     Indication: Transitional cell carcinoma
  5. GEMCITABINE HYDROCHLORIDE [Suspect]
     Active Substance: GEMCITABINE HYDROCHLORIDE
     Indication: HER2 protein overexpression
     Dosage: 800 MG/M2, CYCLIC(ON DAYS 1 AND 8)
  6. GEMCITABINE HYDROCHLORIDE [Suspect]
     Active Substance: GEMCITABINE HYDROCHLORIDE
     Indication: Transitional cell carcinoma
  7. TRASTUZUMAB [Suspect]
     Active Substance: TRASTUZUMAB
     Indication: HER2 protein overexpression
     Dosage: 4 MG/KG, CYCLIC(AS A LOADING DOSE)
  8. TRASTUZUMAB [Suspect]
     Active Substance: TRASTUZUMAB
     Indication: Transitional cell carcinoma
     Dosage: 2 MG/KG, CYCLIC(ON DAYS 1, 8, AND 15)

REACTIONS (2)
  - Febrile neutropenia [Fatal]
  - Infection [Fatal]
